FAERS Safety Report 24032466 (Version 1)
Quarter: 2024Q3

REPORT INFORMATION
  Report Type: Spontaneous
  Country: NO (occurrence: NO)
  Receive Date: 20240701
  Receipt Date: 20240701
  Transmission Date: 20241016
  Serious: Yes (Hospitalization, Disabling)
  Sender: STRIDES
  Company Number: None

PATIENT
  Age: 73 Year
  Sex: Female

DRUGS (6)
  1. PREDNISOLONE [Suspect]
     Active Substance: PREDNISOLONE
     Indication: Chronic obstructive pulmonary disease
     Dosage: UNK (SHORT COURSES ONCE OR TWICE PER YEAR, TYPICALLY ADMINISTERED OVER 4 WEEKS, STARTING AT 20-30 MG
     Route: 048
  2. PREDNISOLONE [Suspect]
     Active Substance: PREDNISOLONE
     Indication: Respiratory tract infection
     Dosage: 30 MILLIGRAM, QD (ONCE OR TWICE PER YEAR, TYPICALLY ADMINISTERED OVER 4 WEEKS, STARTING AT 20-30 MG/
     Route: 048
  3. PREDNISOLONE [Suspect]
     Active Substance: PREDNISOLONE
     Dosage: 20 MILLIGRAM, QD (ONCE OR TWICE PER YEAR, TYPICALLY ADMINISTERED OVER 4 WEEKS, STARTING AT 20-30 MG/
     Route: 048
  4. PREDNISOLONE [Suspect]
     Active Substance: PREDNISOLONE
     Dosage: 5 MILLIGRAM, QD (ONCE OR TWICE PER YEAR, TYPICALLY ADMINISTERED OVER 4 WEEKS, STARTING AT 20-30 MG/D
     Route: 048
  5. FLUTICASONE FUROATE\SALMETEROL XINAFOATE [Suspect]
     Active Substance: FLUTICASONE FUROATE\SALMETEROL XINAFOATE
     Indication: Chronic obstructive pulmonary disease
     Dosage: UNK
  6. FLUTICASONE FUROATE\SALMETEROL XINAFOATE [Suspect]
     Active Substance: FLUTICASONE FUROATE\SALMETEROL XINAFOATE
     Indication: Respiratory tract infection

REACTIONS (7)
  - Iris bombe [Recovered/Resolved]
  - Pupillary disorder [Recovered/Resolved]
  - Glaucoma [Recovered/Resolved]
  - Fungal infection [Recovered/Resolved]
  - Mycotic endophthalmitis [Recovered/Resolved]
  - Pneumonia haemophilus [Recovered/Resolved]
  - Immunosuppression [Unknown]
